FAERS Safety Report 9122608 (Version 2)
Quarter: 2013Q2

REPORT INFORMATION
  Report Type: Spontaneous
  Country: US (occurrence: None)
  Receive Date: 20130131
  Receipt Date: 20130606
  Transmission Date: 20140414
  Serious: Yes (Other)
  Sender: FDA-Public Use
  Company Number: JPI-P-029134

PATIENT
  Age: 47 Year
  Sex: Female
  Weight: 90.72 kg

DRUGS (9)
  1. XYREM (500 MILLIGRAM/MILLILITERS, SOLUTION) (SODIUM OXYBATE) [Suspect]
     Indication: FIBROMYALGIA
     Dosage: 4.5 GM (2.25 MG, 2 IN 1 D), ORAL
     Route: 048
     Dates: start: 20121220
  2. XYREM (500 MILLIGRAM/MILLILITERS, SOLUTION) (SODIUM OXYBATE) [Suspect]
     Indication: INSOMNIA
     Dosage: 4.5 GM (2.25 MG, 2 IN 1 D), ORAL
     Route: 048
     Dates: start: 20121220
  3. MAGNESIUM [Concomitant]
  4. LANSOPRAZOLE [Concomitant]
  5. CARVEDILOL [Concomitant]
  6. LISINOPRIL/HCTZ [Concomitant]
  7. DESVENLAFAXINE [Concomitant]
  8. TIZANIDINE [Concomitant]
  9. PRODRIN [Concomitant]

REACTIONS (8)
  - Hypertension [None]
  - Dehydration [None]
  - Night sweats [None]
  - Feeling jittery [None]
  - Nervousness [None]
  - Pain [None]
  - Kidney infection [None]
  - Sleep disorder [None]
